FAERS Safety Report 10186599 (Version 1)
Quarter: 2014Q2

REPORT INFORMATION
  Report Type: Report from Study
  Country: US (occurrence: US)
  Receive Date: 20140521
  Receipt Date: 20140521
  Transmission Date: 20141212
  Serious: Yes (Other)
  Sender: FDA-Public Use
  Company Number: US-ROCHE-1403326

PATIENT
  Age: 57 Year
  Sex: Female
  Weight: 136.2 kg

DRUGS (5)
  1. HERCEPTIN [Suspect]
     Indication: BREAST CANCER
     Route: 042
     Dates: start: 20140131
  2. PERJETA [Suspect]
     Indication: BREAST CANCER
     Route: 042
     Dates: start: 20140131
  3. TAXOTERE [Concomitant]
  4. CARBOPLATIN [Concomitant]
  5. METFORMIN [Concomitant]
     Route: 065

REACTIONS (9)
  - Red blood cell count decreased [Recovered/Resolved]
  - Fatigue [Not Recovered/Not Resolved]
  - Diarrhoea [Not Recovered/Not Resolved]
  - Dyspnoea [Not Recovered/Not Resolved]
  - Dysgeusia [Not Recovered/Not Resolved]
  - Rash [Unknown]
  - Blister [Unknown]
  - Nail infection [Unknown]
  - Skin exfoliation [Unknown]
